FAERS Safety Report 17776080 (Version 4)
Quarter: 2020Q3

REPORT INFORMATION
  Report Type: Spontaneous
  Country: US (occurrence: US)
  Receive Date: 20200513
  Receipt Date: 20200724
  Transmission Date: 20201102
  Serious: No
  Sender: FDA-Public Use
  Company Number: US-PFIZER INC-2020169963

PATIENT
  Age: 51 Year
  Sex: Male
  Weight: 65 kg

DRUGS (3)
  1. KEYTRUDA [Concomitant]
     Active Substance: PEMBROLIZUMAB
     Indication: RENAL CELL CARCINOMA
     Dosage: UNK, EVERY 3 WEEKS
     Dates: start: 202004
  2. INLYTA [Suspect]
     Active Substance: AXITINIB
     Indication: RENAL CELL CARCINOMA
     Dosage: 5 MG, 2X/DAY (BID) X 28DAYS
     Route: 048
  3. INLYTA [Suspect]
     Active Substance: AXITINIB
     Dosage: 7 MG (A 5 MG TABLET AND TWO 1 MG TABLETS), 2X/DAY
     Dates: start: 20200430, end: 2020

REACTIONS (2)
  - Neoplasm progression [Unknown]
  - Product prescribing error [Unknown]
